FAERS Safety Report 11239168 (Version 1)
Quarter: 2015Q3

REPORT INFORMATION
  Report Type: Spontaneous
  Country: US (occurrence: None)
  Receive Date: 20150701
  Receipt Date: 20150701
  Transmission Date: 20151125
  Serious: Yes (Death, Hospitalization)
  Sender: FDA-Public Use
  Company Number: None

PATIENT
  Age: 65 Year
  Sex: Male
  Weight: 112.7 kg

DRUGS (2)
  1. CEFTRIAXONE. [Suspect]
     Active Substance: CEFTRIAXONE
     Route: 042
     Dates: start: 20130318, end: 20130324
  2. CEFTAZIDIME. [Suspect]
     Active Substance: CEFTAZIDIME
     Indication: PNEUMONIA
     Route: 042
     Dates: start: 20130326, end: 20130402

REACTIONS (6)
  - Hepatic failure [None]
  - Respiratory failure [None]
  - Transaminases increased [None]
  - Cholestasis [None]
  - Multi-organ failure [None]
  - Renal failure [None]

NARRATIVE: CASE EVENT DATE: 20130402
